FAERS Safety Report 5884570-2 (Version None)
Quarter: 2008Q3

REPORT INFORMATION
  Report Type: 
  Country: None (occurrence: None)
  Receive Date: 20080915
  Receipt Date: 20080915
  Transmission Date: 20090109
  Serious: Yes (Other)
  Sender: FDA-Public Use
  Company Number: None

PATIENT
  Age: 32 Year
  Sex: Female
  Weight: 60.782 kg

DRUGS (1)
  1. BUPROPION HCL [Suspect]
     Indication: FATIGUE
     Dosage: PO
     Route: 048
     Dates: start: 20080801

REACTIONS (3)
  - DRUG EFFECT DECREASED [None]
  - FATIGUE [None]
  - HEADACHE [None]
